FAERS Safety Report 5964906-4 (Version None)
Quarter: 2008Q4

REPORT INFORMATION
  Report Type: 
  Country: None (occurrence: None)
  Receive Date: 20081124
  Receipt Date: 20081124
  Transmission Date: 20090506
  Serious: Yes (Other)
  Sender: FDA-Public Use
  Company Number: None

PATIENT
  Sex: Female
  Weight: 145.151 kg

DRUGS (1)
  1. CHANTIX [Suspect]
     Indication: TOBACCO ABUSE
     Dates: start: 20081013, end: 20081027

REACTIONS (4)
  - CONFUSIONAL STATE [None]
  - DELIRIUM [None]
  - HALLUCINATION, VISUAL [None]
  - SPEECH DISORDER [None]
